FAERS Safety Report 13924251 (Version 2)
Quarter: 2017Q3

REPORT INFORMATION
  Report Type: Spontaneous
  Country: KR (occurrence: KR)
  Receive Date: 20170831
  Receipt Date: 20170920
  Transmission Date: 20171127
  Serious: Yes (Death, Hospitalization, Other)
  Sender: FDA-Public Use
  Company Number: KR-BAYER-2017-158666

PATIENT
  Age: 57 Year
  Sex: Female

DRUGS (3)
  1. FOLFOX [Concomitant]
     Active Substance: FLUOROURACIL\LEUCOVORIN CALCIUM\OXALIPLATIN
     Dosage: UNK
     Dates: start: 201305
  2. FOLFIRI [Concomitant]
     Active Substance: FLUOROURACIL\IRINOTECAN\LEUCOVORIN
     Dosage: UNK
     Dates: start: 201305
  3. STIVARGA [Suspect]
     Active Substance: REGORAFENIB
     Indication: COLON CANCER
     Dosage: UNK
     Dates: start: 20131205, end: 20140128

REACTIONS (7)
  - Colon cancer [None]
  - Lymphadenopathy [None]
  - Aorto-duodenal fistula [None]
  - Abdominal lymphadenopathy [None]
  - Retroperitoneal lymphadenopathy [None]
  - Death [Fatal]
  - Fistula of small intestine [None]

NARRATIVE: CASE EVENT DATE: 201401
